FAERS Safety Report 13557066 (Version 1)
Quarter: 2017Q2

REPORT INFORMATION
  Report Type: Spontaneous
  Country: US (occurrence: US)
  Receive Date: 20170518
  Receipt Date: 20170518
  Transmission Date: 20170830
  Serious: Yes (Other)
  Sender: FDA-Public Use
  Company Number: US-GLAXOSMITHKLINE-US2017069774

PATIENT
  Sex: Female

DRUGS (1)
  1. THERAFLU EXPRESSMAX DAYTIME NIGHTTIME VALUE PACK [Suspect]
     Active Substance: ACETAMINOPHEN\DEXTROMETHORPHAN HYDROBROMIDE\DIPHENHYDRAMINE HYDROCHLORIDE\PHENYLEPHRINE HYDROCHLORIDE
     Indication: INFLUENZA
     Dosage: UNK

REACTIONS (7)
  - Cough [Unknown]
  - Retching [Unknown]
  - Vomiting [Unknown]
  - Condition aggravated [Unknown]
  - Choking [Unknown]
  - Drug ineffective for unapproved indication [Unknown]
  - Off label use [Unknown]
